FAERS Safety Report 5129636-X (Version None)
Quarter: 2006Q4

REPORT INFORMATION
  Report Type: 
  Country: None (occurrence: None)
  Receive Date: 20061012
  Receipt Date: 20060929
  Transmission Date: 20070319
  Serious: Yes (Other)
  Sender: FDA-Public Use
  Company Number: 2006119252

PATIENT

DRUGS (2)
  1. ZYVOX [Suspect]
     Dosage: 1200 MG 9600 MG, 2 IN 1 D)
     Dates: start: 20060101
  2. ETHAMBUTOL HYDROCHLORIDE [Concomitant]

REACTIONS (2)
  - RETINAL HAEMORRHAGE [None]
  - VISUAL DISTURBANCE [None]
